FAERS Safety Report 13431377 (Version 2)
Quarter: 2017Q2

REPORT INFORMATION
  Report Type: Report from Study
  Country: FR (occurrence: FR)
  Receive Date: 20170412
  Receipt Date: 20170629
  Transmission Date: 20170830
  Serious: No
  Sender: FDA-Public Use
  Company Number: PHHY2016FR080620

PATIENT
  Age: 75 Year
  Sex: Male

DRUGS (1)
  1. ZARZIO [Suspect]
     Active Substance: FILGRASTIM
     Indication: PRODUCT USED FOR UNKNOWN INDICATION
     Dosage: 48 MU/DAY
     Route: 058
     Dates: start: 20160315, end: 20160527

REACTIONS (3)
  - Anaemia [Unknown]
  - Drug intolerance [Unknown]
  - Mesothelioma [Unknown]

NARRATIVE: CASE EVENT DATE: 20160525
